FAERS Safety Report 6038003-6 (Version None)
Quarter: 2009Q1

REPORT INFORMATION
  Report Type: 
  Country: None (occurrence: None)
  Receive Date: 20090115
  Receipt Date: 20090112
  Transmission Date: 20090719
  Serious: Yes (Other)
  Sender: FDA-Public Use
  Company Number: DE-BRISTOL-MYERS SQUIBB COMPANY-14467575

PATIENT
  Age: 45 Year
  Sex: Female

DRUGS (4)
  1. EFAVIRENZ [Interacting]
     Indication: HIV INFECTION
  2. LEVOMETHADONE [Interacting]
  3. LAMIVUDINE [Suspect]
     Indication: HIV INFECTION
  4. ABACAVIR [Suspect]
     Indication: HIV INFECTION

REACTIONS (3)
  - DRUG INTERACTION [None]
  - DRUG WITHDRAWAL SYNDROME [None]
  - OSTEOMALACIA [None]
